FAERS Safety Report 9458191 (Version 1)
Quarter: 2013Q3

REPORT INFORMATION
  Report Type: Spontaneous
  Country: US (occurrence: US)
  Receive Date: 20130814
  Receipt Date: 20130814
  Transmission Date: 20140515
  Serious: No
  Sender: FDA-Public Use
  Company Number: US-GLAXOSMITHKLINE-A1021312A

PATIENT
  Age: 62 Year
  Sex: Female

DRUGS (2)
  1. VELTIN [Suspect]
     Indication: FOLLICULITIS
     Dosage: 1APP VARIABLE DOSE
     Route: 061
     Dates: start: 201304, end: 201304
  2. VASELINE [Concomitant]

REACTIONS (4)
  - Drug ineffective [Unknown]
  - Condition aggravated [Unknown]
  - Application site irritation [Unknown]
  - Application site erythema [Unknown]
